FAERS Safety Report 20309245 (Version 2)
Quarter: 2022Q1

REPORT INFORMATION
  Report Type: Report from Study
  Country: CA (occurrence: CA)
  Receive Date: 20220107
  Receipt Date: 20220125
  Transmission Date: 20220423
  Serious: Yes (Other)
  Sender: FDA-Public Use
  Company Number: CA-BMKK-BMS-2021-037024AA

PATIENT
  Age: 57 Year
  Sex: Female

DRUGS (9)
  1. NIVOLUMAB [Suspect]
     Active Substance: NIVOLUMAB
     Indication: Pleural mesothelioma
     Dosage: 150 MILLIGRAM, Q2WK
     Route: 042
     Dates: start: 20210414
  2. NIVOLUMAB [Suspect]
     Active Substance: NIVOLUMAB
     Dosage: 162 MILLIGRAM, Q2WK
     Route: 042
     Dates: start: 20210414
  3. NIVOLUMAB [Suspect]
     Active Substance: NIVOLUMAB
     Dosage: 162 MILLIGRAM, Q2WK
     Route: 065
     Dates: start: 20210414
  4. NIVOLUMAB [Suspect]
     Active Substance: NIVOLUMAB
     Dosage: 165 MILLIGRAM, Q2WK
     Route: 042
     Dates: start: 20210414
  5. YERVOY [Suspect]
     Active Substance: IPILIMUMAB
     Indication: Pleural mesothelioma
     Dosage: 54 MILLIGRAM, Q6WK
     Route: 042
     Dates: start: 20210414
  6. YERVOY [Suspect]
     Active Substance: IPILIMUMAB
     Dosage: 50 MILLIGRAM, Q6WK
     Route: 042
     Dates: start: 20210414, end: 20210825
  7. PREGABALIN [Concomitant]
     Active Substance: PREGABALIN
     Indication: Product used for unknown indication
     Dosage: UNK
     Route: 065
  8. HYDROMORPHONE [Concomitant]
     Active Substance: HYDROMORPHONE
     Indication: Product used for unknown indication
     Dosage: UNK
     Route: 065
  9. PANTOPRAZOLE SODIUM [Concomitant]
     Active Substance: PANTOPRAZOLE SODIUM
     Indication: Product used for unknown indication
     Dosage: UNK
     Route: 065

REACTIONS (50)
  - Blindness [Not Recovered/Not Resolved]
  - Gastritis [Not Recovered/Not Resolved]
  - Fatigue [Not Recovered/Not Resolved]
  - Metastases to bone [Unknown]
  - Pruritus [Not Recovered/Not Resolved]
  - Gait disturbance [Not Recovered/Not Resolved]
  - Dyspnoea [Recovering/Resolving]
  - Cough [Recovered/Resolved]
  - Constipation [Recovering/Resolving]
  - Nausea [Not Recovered/Not Resolved]
  - Tremor [Not Recovered/Not Resolved]
  - Dysphonia [Recovering/Resolving]
  - Dry skin [Unknown]
  - Asthenia [Unknown]
  - Muscular weakness [Unknown]
  - Chills [Not Recovered/Not Resolved]
  - Pyrexia [Unknown]
  - Tension [Unknown]
  - Decreased appetite [Not Recovered/Not Resolved]
  - Somnolence [Not Recovered/Not Resolved]
  - Dizziness [Not Recovered/Not Resolved]
  - Restless legs syndrome [Unknown]
  - Arthralgia [Recovering/Resolving]
  - Loss of personal independence in daily activities [Unknown]
  - Visual impairment [Unknown]
  - Cyst [Unknown]
  - Pain [Not Recovered/Not Resolved]
  - Headache [Recovered/Resolved]
  - Dysphagia [Unknown]
  - Chest pain [Not Recovered/Not Resolved]
  - Memory impairment [Not Recovered/Not Resolved]
  - Weight increased [Not Recovered/Not Resolved]
  - Increased appetite [Unknown]
  - Limb discomfort [Not Recovered/Not Resolved]
  - Aphonia [Recovered/Resolved]
  - Dyspnoea exertional [Recovering/Resolving]
  - Speech disorder [Recovered/Resolved]
  - Blood thyroid stimulating hormone increased [Unknown]
  - Thyroxine decreased [Unknown]
  - Rash [Unknown]
  - Back pain [Unknown]
  - Thyroid disorder [Unknown]
  - Diarrhoea [Recovered/Resolved]
  - Dry eye [Recovered/Resolved]
  - Urinary tract infection [Unknown]
  - Decreased interest [Unknown]
  - Joint stiffness [Not Recovered/Not Resolved]
  - Bladder discomfort [Recovering/Resolving]
  - Nocturia [Unknown]
  - Insomnia [Unknown]

NARRATIVE: CASE EVENT DATE: 20210428
